FAERS Safety Report 21857770 (Version 1)
Quarter: 2023Q1

REPORT INFORMATION
  Report Type: Report from Study
  Country: US (occurrence: US)
  Receive Date: 20230113
  Receipt Date: 20230113
  Transmission Date: 20230418
  Serious: No
  Sender: FDA-Public Use
  Company Number: US-ABBVIE-22K-163-4465077-00

PATIENT
  Age: 53 Year
  Sex: Female

DRUGS (4)
  1. SKYRIZI [Suspect]
     Active Substance: RISANKIZUMAB-RZAA
     Indication: Psoriasis
     Dosage: WEEK 0, WEEK 4 AND THEN EVERY 12 WEEKS?FORM STRENGTH: 150MG
     Route: 058
     Dates: start: 20210908, end: 202203
  2. SKYRIZI [Suspect]
     Active Substance: RISANKIZUMAB-RZAA
     Indication: Psoriasis
     Dosage: FORM STRENGTH: 150MG?EVERY 12 WEEKS
     Route: 058
     Dates: start: 20220610
  3. SKYRIZI [Suspect]
     Active Substance: RISANKIZUMAB-RZAA
     Indication: Psoriasis
     Dosage: 150MG
     Route: 058
     Dates: start: 20220711, end: 20220909
  4. SKYRIZI [Suspect]
     Active Substance: RISANKIZUMAB-RZAA
     Route: 058

REACTIONS (16)
  - Food poisoning [Recovered/Resolved]
  - Dermatitis atopic [Recovering/Resolving]
  - Eczema [Recovering/Resolving]
  - Rash papular [Unknown]
  - Pyrexia [Unknown]
  - Loss of personal independence in daily activities [Unknown]
  - Rash [Unknown]
  - Pain [Unknown]
  - Burning sensation [Unknown]
  - Dermatitis atopic [Unknown]
  - General physical health deterioration [Unknown]
  - Impaired work ability [Unknown]
  - Psoriasis [Recovering/Resolving]
  - Rash erythematous [Unknown]
  - Exfoliative rash [Unknown]
  - Feeling hot [Unknown]

NARRATIVE: CASE EVENT DATE: 20220701
